FAERS Safety Report 13895203 (Version 1)
Quarter: 2017Q3

REPORT INFORMATION
  Report Type: Spontaneous
  Country: US (occurrence: US)
  Receive Date: 20170818
  Receipt Date: 20170818
  Transmission Date: 20171127
  Serious: Yes (Life-Threatening, Hospitalization)
  Sender: FDA-Public Use
  Company Number: None

PATIENT
  Sex: Male

DRUGS (1)
  1. BABY TEETHING (HYLAND HOMEOPATHIC) [Suspect]
     Active Substance: HOMEOPATHICS
     Indication: TEETHING
     Dosage: ?          QUANTITY:1 TABLET(S);?
     Route: 048
     Dates: start: 20140915, end: 20140916

REACTIONS (10)
  - Tremor [None]
  - Lethargy [None]
  - Dyskinesia [None]
  - Loss of consciousness [None]
  - Speech disorder [None]
  - Musculoskeletal stiffness [None]
  - Urinary retention [None]
  - Hyperhidrosis [None]
  - Skin discolouration [None]
  - Staring [None]

NARRATIVE: CASE EVENT DATE: 20140916
